FAERS Safety Report 10209300 (Version 1)
Quarter: 2014Q2

REPORT INFORMATION
  Report Type: Spontaneous
  Country: JP (occurrence: JP)
  Receive Date: 20140530
  Receipt Date: 20140530
  Transmission Date: 20141212
  Serious: Yes (Other)
  Sender: FDA-Public Use
  Company Number: PHHY2014JP061994

PATIENT
  Age: 17 Year
  Sex: Female

DRUGS (1)
  1. HYDROXYZINE [Suspect]
     Indication: INDUCTION OF ANAESTHESIA
     Dosage: 50 MG, UNK
     Route: 030

REACTIONS (5)
  - Skin necrosis [Recovered/Resolved]
  - Skin induration [Recovered/Resolved]
  - Skin erosion [Recovered/Resolved]
  - Skin ulcer [Recovered/Resolved]
  - Injection site extravasation [Unknown]
